FAERS Safety Report 9271742 (Version 1)
Quarter: 2013Q2

REPORT INFORMATION
  Report Type: Spontaneous
  Country: US (occurrence: US)
  Receive Date: 20130506
  Receipt Date: 20130506
  Transmission Date: 20140414
  Serious: Yes (Other)
  Sender: FDA-Public Use
  Company Number: US-PFIZER INC-2013139775

PATIENT
  Sex: Male

DRUGS (2)
  1. CHANTIX [Suspect]
     Dosage: 0.5 MG, WHITE PILLS FOR 7 DAYS
  2. CHANTIX [Suspect]
     Dosage: 1 MG, BLUE PILLS 3 DAYS

REACTIONS (2)
  - Joint swelling [Unknown]
  - Local swelling [Unknown]
